FAERS Safety Report 18282334 (Version 1)
Quarter: 2020Q3

REPORT INFORMATION
  Report Type: Spontaneous
  Country: FR (occurrence: FR)
  Receive Date: 20200918
  Receipt Date: 20200918
  Transmission Date: 20201103
  Serious: Yes (Other)
  Sender: FDA-Public Use
  Company Number: NVSC2020FR249222

PATIENT
  Age: 62 Year
  Sex: Female
  Weight: 51 kg

DRUGS (2)
  1. KISQALI [Suspect]
     Active Substance: RIBOCICLIB
     Indication: INVASIVE LOBULAR BREAST CARCINOMA
     Dosage: 600 MG, QD
     Route: 048
     Dates: start: 202001
  2. FULVESTRANT. [Suspect]
     Active Substance: FULVESTRANT
     Indication: INVASIVE LOBULAR BREAST CARCINOMA
     Dosage: 500 MG, QMO
     Route: 030
     Dates: start: 202001

REACTIONS (1)
  - Interstitial lung disease [Not Recovered/Not Resolved]

NARRATIVE: CASE EVENT DATE: 20200615
